FAERS Safety Report 6695985-7 (Version None)
Quarter: 2010Q2

REPORT INFORMATION
  Report Type: 
  Country: None (occurrence: None)
  Receive Date: 20100412
  Receipt Date: 20091104
  Transmission Date: 20101027
  Serious: Yes (Hospitalization)
  Sender: FDA-Public Use
  Company Number: E-09-141 (09-193)

PATIENT
  Age: 47 Year
  Sex: Female

DRUGS (6)
  1. PREDNISONE [Suspect]
     Indication: MULTIPLE SCLEROSIS
     Dosage: 90MG PER DAY, THEN TAPER
     Dates: start: 20090908, end: 20090929
  2. COPAXONE [Concomitant]
  3. LEVOTHYROXINE SODIUM [Concomitant]
  4. PROTONIX [Concomitant]
  5. MOBIC [Concomitant]
  6. NEURONTIN [Concomitant]

REACTIONS (6)
  - ASTHENIA [None]
  - COUGH [None]
  - DECREASED APPETITE [None]
  - ELECTROLYTE IMBALANCE [None]
  - HYPERTENSION [None]
  - SWELLING FACE [None]
